FAERS Safety Report 4684946-5 (Version None)
Quarter: 2005Q2

REPORT INFORMATION
  Report Type: 
  Country: None (occurrence: None)
  Receive Date: 20050603
  Receipt Date: 20050519
  Transmission Date: 20051028
  Serious: Yes (Life-Threatening, Hospitalization)
  Sender: FDA-Public Use
  Company Number: WAES 99117015

PATIENT
  Age: 57 Year
  Sex: Female

DRUGS (6)
  1. VIOXX [Suspect]
     Indication: RHEUMATOID ARTHRITIS
     Dosage: 50 MG/DAILY PO
     Route: 048
     Dates: start: 19990125, end: 19991108
  2. TAB PLACEBO (UNSPECIFIED) [Suspect]
     Indication: RHEUMATOID ARTHRITIS
     Dates: start: 19990125, end: 19991108
  3. ESTRADIOL/NORETHINDRONE ACETATE [Concomitant]
  4. LISINOPRIL AND HYDROCHLOROTHIAZIDE [Concomitant]
  5. METHOTREXATE [Concomitant]
  6. METOPROLOL [Concomitant]

REACTIONS (4)
  - ALANINE AMINOTRANSFERASE INCREASED [None]
  - ASPARTATE AMINOTRANSFERASE INCREASED [None]
  - MYOCARDIAL INFARCTION [None]
  - VENTRICULAR HYPERTROPHY [None]
